FAERS Safety Report 6259974-9 (Version None)
Quarter: 2009Q3

REPORT INFORMATION
  Report Type: 
  Country: None (occurrence: None)
  Receive Date: 20090708
  Receipt Date: 20090626
  Transmission Date: 20100115
  Serious: Yes (Other)
  Sender: FDA-Public Use
  Company Number: NZ-PFIZER INC-2009212076

PATIENT

DRUGS (1)
  1. CHAMPIX [Suspect]

REACTIONS (1)
  - MENTAL DISORDER [None]
